FAERS Safety Report 7742328-3 (Version None)
Quarter: 2011Q3

REPORT INFORMATION
  Report Type: 
  Country: None (occurrence: None)
  Receive Date: 20110912
  Receipt Date: 20110907
  Transmission Date: 20111222
  Serious: Yes (Disabling, Other)
  Sender: FDA-Public Use
  Company Number: GB-TEVA-299949ISR

PATIENT
  Age: 73 Year
  Sex: Male

DRUGS (2)
  1. METOPROLOL SUCCINATE [Suspect]
     Indication: ANGINA PECTORIS
     Route: 048
     Dates: start: 19980101
  2. METOPROLOL SUCCINATE [Suspect]
     Dosage: 400 MILLIGRAM;
     Route: 048

REACTIONS (1)
  - DEAFNESS UNILATERAL [None]
